FAERS Safety Report 14400576 (Version 1)
Quarter: 2018Q1

REPORT INFORMATION
  Report Type: Report from Study
  Country: None (occurrence: DE)
  Receive Date: 20180117
  Receipt Date: 20180117
  Transmission Date: 20180509
  Serious: Yes (Death, Hospitalization)
  Sender: FDA-Public Use
  Company Number: DE-ABBVIE-18K-062-2224835-00

PATIENT
  Sex: Male

DRUGS (1)
  1. DUODOPA [Suspect]
     Active Substance: CARBIDOPA\LEVODOPA
     Indication: PARKINSON^S DISEASE
     Dosage: MD 11 ML, CRD 3.3 ML/H; ED 4.0 M
     Route: 050
     Dates: start: 20150608

REACTIONS (3)
  - Restlessness [Unknown]
  - Withdrawal syndrome [Unknown]
  - Pneumonia [Fatal]
